FAERS Safety Report 7049965-2 (Version None)
Quarter: 2010Q4

REPORT INFORMATION
  Report Type: 
  Country: None (occurrence: None)
  Receive Date: 20101018
  Receipt Date: 20101011
  Transmission Date: 20110411
  Serious: Yes (Hospitalization)
  Sender: FDA-Public Use
  Company Number: PHHO2010DZ15506

PATIENT
  Sex: Male
  Weight: 75 kg

DRUGS (1)
  1. AFINITOR [Suspect]
     Indication: RENAL CANCER METASTATIC
     Dosage: 10 MG PER DAY
     Route: 048
     Dates: start: 20100906, end: 20101005

REACTIONS (2)
  - CHEST PAIN [None]
  - PULMONARY EMBOLISM [None]
